FAERS Safety Report 6102921-0 (Version None)
Quarter: 2009Q1

REPORT INFORMATION
  Report Type: 
  Country: None (occurrence: None)
  Receive Date: 20090303
  Receipt Date: 20090303
  Transmission Date: 20090719
  Serious: Yes (Death, Other)
  Sender: FDA-Public Use
  Company Number: None

PATIENT
  Age: 56 Year
  Sex: Female
  Weight: 107.5025 kg

DRUGS (2)
  1. HYDROCHLOROTHIAZIDE [Suspect]
     Indication: HYPOTENSION
     Dates: start: 20080717, end: 20080727
  2. KLOR-CON M20 [Suspect]
     Indication: BLOOD POTASSIUM DECREASED
     Dates: start: 20080731, end: 20080817

REACTIONS (13)
  - ATRIAL FIBRILLATION [None]
  - BACK PAIN [None]
  - BLOOD GLUCOSE INCREASED [None]
  - BLOOD MAGNESIUM DECREASED [None]
  - BLOOD POTASSIUM DECREASED [None]
  - CARDIAC DISORDER [None]
  - CORONARY ARTERY THROMBOSIS [None]
  - HEADACHE [None]
  - HYPERHIDROSIS [None]
  - NECK PAIN [None]
  - THROMBOTIC STROKE [None]
  - URINARY TRACT INFECTION [None]
  - VISUAL IMPAIRMENT [None]
